FAERS Safety Report 16483282 (Version 1)
Quarter: 2019Q2

REPORT INFORMATION
  Report Type: Spontaneous
  Country: JP (occurrence: JP)
  Receive Date: 20190627
  Receipt Date: 20190627
  Transmission Date: 20190711
  Serious: Yes (Other)
  Sender: FDA-Public Use
  Company Number: JP-JNJFOC-20190627975

PATIENT
  Age: 7 Decade
  Sex: Male

DRUGS (1)
  1. INFLIXIMAB, RECOMBINANT SOLUTION FOR INFUSION [Suspect]
     Active Substance: INFLIXIMAB
     Indication: CROHN^S DISEASE
     Route: 042

REACTIONS (1)
  - Lung neoplasm malignant [Unknown]
